FAERS Safety Report 9648554 (Version 3)
Quarter: 2013Q4

REPORT INFORMATION
  Report Type: Spontaneous
  Country: SG (occurrence: SG)
  Receive Date: 20131028
  Receipt Date: 20131101
  Transmission Date: 20140711
  Serious: Yes (Other)
  Sender: FDA-Public Use
  Company Number: PHHY2013SG109503

PATIENT
  Age: 83 Year
  Sex: Female

DRUGS (7)
  1. CARBAMAZEPINE [Suspect]
     Indication: PAIN
     Dosage: 200 MG TWICE DAILY
  2. CARBAMAZEPINE [Suspect]
     Dosage: 100 MG TWICE DAILY
  3. GABAPENTIN [Suspect]
     Indication: PAIN
     Dosage: 400 MG TWICE DAILY
  4. GABAPENTIN [Suspect]
     Dosage: 300 MG TWICE DAILY
  5. LAMOTRIGINE [Suspect]
     Indication: PAIN
     Dosage: 100 MG DAILY
  6. INDOMETHACIN [Suspect]
     Indication: PAIN
     Dosage: 25 MG, TID
  7. NORTRIPTYLINE [Concomitant]
     Dosage: 20 MG EVERY NIGHT

REACTIONS (3)
  - Pain [Recovered/Resolved]
  - Dizziness [Unknown]
  - Somnolence [Unknown]
